FAERS Safety Report 20290259 (Version 4)
Quarter: 2022Q1

REPORT INFORMATION
  Report Type: Spontaneous
  Country: NL (occurrence: NL)
  Receive Date: 20220104
  Receipt Date: 20220316
  Transmission Date: 20220423
  Serious: Yes (Death)
  Sender: FDA-Public Use
  Company Number: NL-ALEMBIC-2021SCAL000580

PATIENT
  Age: 50 Year
  Sex: Male

DRUGS (10)
  1. VENLAFAXINE [Interacting]
     Active Substance: VENLAFAXINE HYDROCHLORIDE
     Indication: Sleep disorder
     Route: 065
  2. VENLAFAXINE [Interacting]
     Active Substance: VENLAFAXINE HYDROCHLORIDE
     Indication: Stress
     Route: 065
     Dates: end: 2006
  3. VENLAFAXINE [Interacting]
     Active Substance: VENLAFAXINE HYDROCHLORIDE
     Route: 065
     Dates: start: 2005
  4. VENLAFAXINE [Interacting]
     Active Substance: VENLAFAXINE HYDROCHLORIDE
     Route: 065
     Dates: end: 2009
  5. OXAZEPAM [Interacting]
     Active Substance: OXAZEPAM
     Indication: Stress
     Route: 065
     Dates: start: 2005
  6. OXAZEPAM [Interacting]
     Active Substance: OXAZEPAM
     Indication: Sleep disorder
  7. ZOPICLONE [Interacting]
     Active Substance: ZOPICLONE
     Indication: Sleep disorder
     Route: 065
     Dates: start: 2005, end: 2011
  8. ZOPICLONE [Interacting]
     Active Substance: ZOPICLONE
     Indication: Stress
     Route: 065
     Dates: start: 2017
  9. TEMAZEPAM [Interacting]
     Active Substance: TEMAZEPAM
     Indication: Sleep disorder
     Route: 065
     Dates: start: 2005, end: 2011
  10. TEMAZEPAM [Interacting]
     Active Substance: TEMAZEPAM
     Indication: Stress
     Route: 065
     Dates: start: 2017

REACTIONS (3)
  - Completed suicide [Fatal]
  - Treatment noncompliance [Unknown]
  - Product dose omission in error [Unknown]

NARRATIVE: CASE EVENT DATE: 20170101
